FAERS Safety Report 5472302-1 (Version None)
Quarter: 2007Q3

REPORT INFORMATION
  Report Type: 
  Country: None (occurrence: None)
  Receive Date: 20070927
  Receipt Date: 20070919
  Transmission Date: 20080115
  Serious: Yes (Death, Hospitalization)
  Sender: FDA-Public Use
  Company Number: 2004BI001199

PATIENT
  Age: 68 Year
  Sex: Female

DRUGS (9)
  1. AVONEX [Suspect]
     Indication: MULTIPLE SCLEROSIS
     Dosage: 30 UG;QW;IM
     Route: 030
     Dates: start: 19991001, end: 20070601
  2. NEURONTIN [Concomitant]
  3. ZOCOR [Concomitant]
  4. NITRAMINE [Concomitant]
  5. LEVOXYL [Concomitant]
  6. FOSAMAX [Concomitant]
  7. IMIPRAMINE [Concomitant]
  8. PROVIGIL [Concomitant]
  9. PROTONIX [Concomitant]

REACTIONS (11)
  - ANAEMIA [None]
  - BACK DISORDER [None]
  - BRONCHIECTASIS [None]
  - CARDIOMEGALY [None]
  - COR PULMONALE [None]
  - CORONARY ARTERY DISEASE [None]
  - GASTROINTESTINAL HAEMORRHAGE [None]
  - IDIOPATHIC PULMONARY FIBROSIS [None]
  - MYOCARDIAL INFARCTION [None]
  - OBSTRUCTIVE AIRWAYS DISORDER [None]
  - REFUSAL OF TREATMENT BY PATIENT [None]
